FAERS Safety Report 24291342 (Version 1)
Quarter: 2024Q3

REPORT INFORMATION
  Report Type: Spontaneous
  Country: US (occurrence: None)
  Receive Date: 20240906
  Receipt Date: 20240906
  Transmission Date: 20241017
  Serious: No
  Sender: DOMPE FARMACEUTICI
  Company Number: US-FARMAPROD-202308-2475

PATIENT
  Sex: Female
  Weight: 73.26 kg

DRUGS (12)
  1. OXERVATE [Suspect]
     Active Substance: CENEGERMIN-BKBJ
     Indication: Neurotrophic keratopathy
     Route: 047
     Dates: start: 20230807
  2. DORZOLAMIDE [Concomitant]
     Active Substance: DORZOLAMIDE
     Dosage: 22.3-6.8/1
  3. COLACE [Concomitant]
     Active Substance: DOCUSATE SODIUM
  4. LATANOPROST [Concomitant]
     Active Substance: LATANOPROST
  5. JANUVIA [Concomitant]
     Active Substance: SITAGLIPTIN PHOSPHATE
  6. CRESTOR [Concomitant]
     Active Substance: ROSUVASTATIN CALCIUM
  7. OMEPRAZOLE [Concomitant]
     Active Substance: OMEPRAZOLE
  8. VALTREX [Concomitant]
     Active Substance: VALACYCLOVIR HYDROCHLORIDE
  9. DUREZOL [Concomitant]
     Active Substance: DIFLUPREDNATE
  10. MOXIFLOXACIN [Concomitant]
     Active Substance: MOXIFLOXACIN
  11. PILOCARPINE HYDROCHLORIDE [Concomitant]
     Active Substance: PILOCARPINE HYDROCHLORIDE
  12. DULOXETINE HYDROCHLORIDE [Concomitant]
     Active Substance: DULOXETINE HYDROCHLORIDE

REACTIONS (1)
  - Intraocular pressure increased [Unknown]
